FAERS Safety Report 8010243 (Version 2)
Quarter: 2013Q1

REPORT INFORMATION
  Report Type: Spontaneous
  Country: US (occurrence: None)
  Receive Date: 20110603
  Receipt Date: 20130118
  Transmission Date: 20140127
  Serious: Yes (Other)
  Sender: FDA-Public Use
  Company Number: US-005433

PATIENT
  Sex: Female

DRUGS (2)
  1. TRANEXAMIC ACID [Suspect]
     Dates: start: 201105
  2. PROVERA [Concomitant]

REACTIONS (1)
  - PULMONARY EMBOLISM [None]
